FAERS Safety Report 8024212-3 (Version None)
Quarter: 2012Q1

REPORT INFORMATION
  Report Type: 
  Country: None (occurrence: None)
  Receive Date: 20120105
  Receipt Date: 20111228
  Transmission Date: 20120608
  Serious: Yes (Hospitalization)
  Sender: FDA-Public Use
  Company Number: PHEH2011US012902

PATIENT
  Sex: Female

DRUGS (8)
  1. PULMOZYME [Concomitant]
  2. OMEPRAZOLE [Concomitant]
  3. CREON [Concomitant]
  4. ALBUTEROL [Concomitant]
  5. MORPHINE [Concomitant]
     Indication: PAIN
     Route: 048
  6. TOBI [Suspect]
     Indication: CYSTIC FIBROSIS
     Dosage: 300 MG, BID, ALTERNATIVE 28 DAYS
  7. ADVAIR DISKUS 100/50 [Concomitant]
  8. ZOFRAN [Concomitant]

REACTIONS (2)
  - PANCREATITIS ACUTE [None]
  - DYSPHONIA [None]
